FAERS Safety Report 16768289 (Version 1)
Quarter: 2019Q3

REPORT INFORMATION
  Report Type: Spontaneous
  Country: MX (occurrence: MX)
  Receive Date: 20190903
  Receipt Date: 20190903
  Transmission Date: 20191005
  Serious: Yes (Other)
  Sender: FDA-Public Use
  Company Number: MX-009507513-1909MEX000552

PATIENT
  Age: 34 Year

DRUGS (1)
  1. CELESTONE PEDIATRICO [Suspect]
     Active Substance: BETAMETHASONE
     Indication: HYPERSENSITIVITY
     Route: 048

REACTIONS (2)
  - Paralysis [Unknown]
  - Hypokalaemia [Unknown]
